FAERS Safety Report 12611527 (Version 1)
Quarter: 2016Q3

REPORT INFORMATION
  Report Type: Spontaneous
  Country: CH (occurrence: ZA)
  Receive Date: 20160801
  Receipt Date: 20160801
  Transmission Date: 20161109
  Serious: Yes (Other)
  Sender: FDA-Public Use
  Company Number: CH-LPDUSPRD-20160662

PATIENT

DRUGS (3)
  1. VENOFER [Suspect]
     Active Substance: IRON SUCROSE
     Route: 065
  2. FERINJECT [Suspect]
     Active Substance: FERRIC CARBOXYMALTOSE
     Route: 065
  3. AMYLOFER [Suspect]
     Active Substance: IRON POLYMALTOSE

REACTIONS (1)
  - Pulmonary oedema [Unknown]
